FAERS Safety Report 10373757 (Version 1)
Quarter: 2014Q1

REPORT INFORMATION
  Report Type: Spontaneous
  Country: US (occurrence: None)
  Receive Date: 20140306
  Receipt Date: 20140306
  Transmission Date: 20141002
  Serious: Yes (Disabling)
  Sender: FDA-Public Use
  Company Number: 163-21880-13051056

PATIENT
  Age: 60 Year
  Sex: Female
  Weight: 109.77 kg

DRUGS (12)
  1. REVLIMID [Suspect]
     Indication: PLASMA CELL MYELOMA
     Dosage: 25 MG, WITH A START ON WEDNESDAY AND ON TUESDAY, PO
     Route: 048
     Dates: start: 20120905
  2. VELCADE [Suspect]
     Indication: PLASMA CELL MYELOMA
     Dates: end: 201301
  3. IMODIUM AD (LOPERAMIDE HYDROCHLORIDE) [Concomitant]
  4. LISINOPRIL (LISINOPRIL) [Concomitant]
  5. NORVASC (AMLODIPINE BESILATE) [Concomitant]
  6. NEURONTIN (GABAPENTIN) [Concomitant]
  7. IBUPROFEN (IBUPROFEN) [Concomitant]
  8. NPH 70/30 (HUMAN MIXTARD) [Concomitant]
  9. MULTIVITAMINS- MINERALS (MULTIVITAMINS WITH MINERALS) [Concomitant]
  10. AMLODIPINE BESYLATE (AMLODIPINE BESILATE) [Concomitant]
  11. FLUCONAZOLE (FLUCONAZOLE) [Concomitant]
  12. INSULIN ISOPHANE AND REGULAR (ISOPHANE INSULIN) [Concomitant]

REACTIONS (3)
  - Platelet count decreased [None]
  - Neutrophil count decreased [None]
  - White blood cell count decreased [None]
